FAERS Safety Report 19746148 (Version 1)
Quarter: 2021Q3

REPORT INFORMATION
  Report Type: Report from Study
  Country: CA (occurrence: CA)
  Receive Date: 20210825
  Receipt Date: 20210825
  Transmission Date: 20211014
  Serious: Yes (Life-Threatening, Hospitalization, Other)
  Sender: FDA-Public Use
  Company Number: CA-BRISTOL-MYERS SQUIBB COMPANY-BMS-2021-084191

PATIENT
  Age: 63 Year
  Sex: Male

DRUGS (1)
  1. NIVOLUMAB [Suspect]
     Active Substance: NIVOLUMAB
     Indication: LUNG NEOPLASM MALIGNANT
     Dosage: UNK
     Route: 042
     Dates: start: 20210324, end: 20210531

REACTIONS (7)
  - Tremor [Unknown]
  - Chills [Unknown]
  - Vomiting [Unknown]
  - Renal impairment [Unknown]
  - Rash [Unknown]
  - Pneumonia [Unknown]
  - Oxygen saturation abnormal [Recovering/Resolving]

NARRATIVE: CASE EVENT DATE: 20210531
